FAERS Safety Report 5669833-8 (Version None)
Quarter: 2008Q1

REPORT INFORMATION
  Report Type: 
  Country: None (occurrence: None)
  Receive Date: 20080317
  Receipt Date: 20080307
  Transmission Date: 20080703
  Serious: Yes (Hospitalization)
  Sender: FDA-Public Use
  Company Number: US-PFIZER INC-2007088510

PATIENT
  Sex: Female
  Weight: 75 kg

DRUGS (16)
  1. CAMPTOSAR [Suspect]
     Indication: COLON CANCER
     Dates: start: 20070101, end: 20070410
  2. ARANESP [Suspect]
     Indication: ANAEMIA OF MALIGNANT DISEASE
     Route: 058
     Dates: start: 20070226, end: 20070410
  3. CETUXIMAB [Suspect]
     Indication: COLON CANCER
     Dates: start: 20070101, end: 20070410
  4. MORPHINE [Suspect]
     Indication: PAIN
  5. ZOFRAN [Concomitant]
     Dosage: DAILY DOSE:8MG
     Route: 048
  6. SENNA FRUIT [Concomitant]
     Indication: DIARRHOEA
     Dosage: DAILY DOSE:325MG
     Route: 048
     Dates: start: 20070202
  7. PROTONIX [Concomitant]
     Dosage: DAILY DOSE:40MG
     Route: 048
     Dates: start: 20061130
  8. COMPAZINE [Concomitant]
     Dosage: DAILY DOSE:10MG
     Route: 048
  9. REGLAN [Concomitant]
     Dosage: DAILY DOSE:10MG
     Route: 048
     Dates: start: 20051028
  10. MS CONTIN [Concomitant]
     Dosage: TEXT:1 DOSE
     Route: 048
     Dates: start: 20061226
  11. MS CONTIN [Concomitant]
     Dosage: DAILY DOSE:15MG
     Route: 048
     Dates: start: 20070406
  12. KYTRIL [Concomitant]
     Dosage: DAILY DOSE:1MG
     Route: 048
     Dates: start: 20070129
  13. GABAPENTIN [Concomitant]
     Dosage: DAILY DOSE:300MG
     Route: 048
     Dates: start: 20070703
  14. LOMOTIL [Concomitant]
     Dosage: DAILY DOSE:2.5MG
     Route: 048
     Dates: start: 20070410
  15. DECADRON [Concomitant]
     Dosage: DAILY DOSE:4MG
     Route: 042
     Dates: start: 20070108
  16. BENADRYL [Concomitant]
     Dosage: DAILY DOSE:25MG
     Route: 042
     Dates: start: 20070410

REACTIONS (1)
  - ACCIDENTAL OVERDOSE [None]
